FAERS Safety Report 4401375-X (Version None)
Quarter: 2004Q3

REPORT INFORMATION
  Report Type: 
  Country: None (occurrence: None)
  Receive Date: 20040907
  Receipt Date: 20040331
  Transmission Date: 20050211
  Serious: No
  Sender: FDA-Public Use
  Company Number: US-BRISTOL-MYERS SQUIBB COMPANY-12547790

PATIENT
  Age: 80 Year
  Sex: Female
  Weight: 73 kg

DRUGS (2)
  1. WARFARIN SODIUM [Suspect]
     Indication: NUTRITIONAL SUPPORT
     Dosage: DOSAGE: 2.5MG FIVE DAYS WEEKLY AND 5MG TWICE WEEKLY
     Route: 048
  2. THERAGRAN-M ADVANCED [Suspect]
     Indication: VITAMIN SUPPLEMENTATION
     Route: 048
     Dates: start: 20040301

REACTIONS (1)
  - PROTHROMBIN TIME PROLONGED [None]
